FAERS Safety Report 15466550 (Version 2)
Quarter: 2018Q4

REPORT INFORMATION
  Report Type: Report from Study
  Country: US (occurrence: US)
  Receive Date: 20181004
  Receipt Date: 20181203
  Transmission Date: 20190204
  Serious: Yes (Hospitalization)
  Sender: FDA-Public Use
  Company Number: PHHY2018US047393

PATIENT
  Age: 53 Year
  Sex: Female
  Weight: 81.24 kg

DRUGS (1)
  1. GILENYA [Suspect]
     Active Substance: FINGOLIMOD HYDROCHLORIDE
     Indication: MULTIPLE SCLEROSIS
     Dosage: 0.5 MG, QD
     Route: 048
     Dates: start: 20171017, end: 20180109

REACTIONS (10)
  - Generalised tonic-clonic seizure [Recovered/Resolved with Sequelae]
  - Fall [Recovered/Resolved with Sequelae]
  - Fibromyalgia [Recovered/Resolved with Sequelae]
  - Hypertension [Recovered/Resolved with Sequelae]
  - Seizure [Unknown]
  - Hyponatraemia [Recovered/Resolved with Sequelae]
  - Muscle rigidity [Unknown]
  - Hepatic steatosis [Unknown]
  - Loss of consciousness [Unknown]
  - Depression [Recovered/Resolved with Sequelae]

NARRATIVE: CASE EVENT DATE: 20180605
